FAERS Safety Report 24210874 (Version 1)
Quarter: 2024Q3

REPORT INFORMATION
  Report Type: Spontaneous
  Country: US (occurrence: None)
  Receive Date: 20240813
  Receipt Date: 20240813
  Transmission Date: 20241017
  Serious: Yes (Hospitalization, Disabling)
  Sender: Public
  Company Number: None

PATIENT
  Age: 44 Year
  Sex: Female
  Weight: 66.6 kg

DRUGS (5)
  1. WEGOVY [Suspect]
     Active Substance: SEMAGLUTIDE
     Indication: Weight decreased
     Dates: start: 20230320
  2. Rusovostatin [Concomitant]
  3. aspirin [Concomitant]
  4. Women^s a day [Concomitant]
  5. multivitamin [Concomitant]

REACTIONS (5)
  - Polymenorrhoea [None]
  - Alopecia [None]
  - Nausea [None]
  - Fatigue [None]
  - Cough [None]

NARRATIVE: CASE EVENT DATE: 20240803
